FAERS Safety Report 15703701 (Version 1)
Quarter: 2018Q4

REPORT INFORMATION
  Report Type: Spontaneous
  Country: US (occurrence: US)
  Receive Date: 20181210
  Receipt Date: 20181210
  Transmission Date: 20190205
  Serious: Yes (Hospitalization, Other)
  Sender: FDA-Public Use
  Company Number: US-TORRENT-00007271

PATIENT
  Age: 93 Year
  Sex: Female

DRUGS (13)
  1. ZOLPIDEM CR [Suspect]
     Active Substance: ZOLPIDEM TARTRATE
     Indication: INSOMNIA
     Dosage: 6.25MG TABLET BY MOUTH AT BEDTIME
     Route: 048
  2. MONTELUKAST [Suspect]
     Active Substance: MONTELUKAST SODIUM
     Indication: ASTHMA
     Dosage: 10MG TABLET BY MOUTH AT BEDTIME
     Route: 048
  3. FAMOTIDINE. [Suspect]
     Active Substance: FAMOTIDINE
     Indication: DUODENOGASTRIC REFLUX
     Dosage: 20MG BY MOUTH TWICE DAILY, THEN WAS DECREASED FROM 20 MG TWICE DAILY TO 10 MG ONCE DAILY
     Route: 048
  4. FLUTICASONE/SALMETEROL [Suspect]
     Active Substance: FLUTICASONE PROPIONATE\SALMETEROL XINAFOATE
     Indication: ASTHMA
     Dosage: 250/50MCG ORAL INHALATION EVERY 12HOURS
     Route: 048
  5. ALPRAZOLAM. [Suspect]
     Active Substance: ALPRAZOLAM
     Indication: AGITATION
     Dosage: 0.25 MG TABLET BY MOUTH TWICE DAILY
     Route: 048
  6. AMLODIPINE [Concomitant]
     Active Substance: AMLODIPINE BESYLATE
     Indication: HYPERTENSION
     Dosage: 10MG TABLET BY MOUTH DAILY
     Route: 048
  7. MEMANTINE. [Suspect]
     Active Substance: MEMANTINE
     Indication: DEMENTIA
     Dosage: 10 MG TABLET BY MOUTH TWICE DAILY
     Route: 048
  8. MIRTAZAPINE. [Suspect]
     Active Substance: MIRTAZAPINE
     Indication: DEPRESSION
     Dosage: 15MG TABLET BY MOUTH AT BEDTIME, DECREASED TO 7.5MG AT BEDTIME
     Route: 048
  9. METOPROLOL XL [Concomitant]
     Active Substance: METOPROLOL SUCCINATE
     Indication: HYPERTENSION
     Dosage: 50MG TABLET BY MOUTH DAILY
     Route: 048
  10. DONEPEZIL. [Suspect]
     Active Substance: DONEPEZIL
     Indication: DEMENTIA
     Dosage: 10 MG TABLET BY MOUTH AT BEDTIME
     Route: 048
  11. ACETAMINOPHEN. [Concomitant]
     Active Substance: ACETAMINOPHEN
     Indication: FRACTURE PAIN
     Dosage: TWO 500MG TABLETS BY MOUTH THREE TIMES DAILY
     Route: 048
  12. CLOPIDOGREL [Concomitant]
     Active Substance: CLOPIDOGREL BISULFATE
     Indication: CORONARY ARTERY DISEASE
     Dosage: 75MG TABLET BY MOUTH AT BEDTIME
     Route: 048
  13. LEVOTHYROXINE. [Concomitant]
     Active Substance: LEVOTHYROXINE
     Indication: HYPOTHYROIDISM
     Dosage: 125MCG  TABLET BY MOUTH DAILY
     Route: 048

REACTIONS (10)
  - Weight decreased [Recovered/Resolved]
  - Drug ineffective [Recovered/Resolved]
  - Fall [Recovered/Resolved]
  - Somnolence [Recovered/Resolved]
  - Decreased appetite [Recovered/Resolved]
  - Dementia [Recovered/Resolved]
  - Confusional state [Recovered/Resolved]
  - End stage renal disease [Recovered/Resolved]
  - Abnormal behaviour [Recovered/Resolved]
  - Failure to thrive [Recovered/Resolved]
